FAERS Safety Report 6662233-3 (Version None)
Quarter: 2010Q1

REPORT INFORMATION
  Report Type: 
  Country: None (occurrence: None)
  Receive Date: 20100331
  Receipt Date: 20100323
  Transmission Date: 20100710
  Serious: Yes (Other)
  Sender: FDA-Public Use
  Company Number: GXKR2010GB03453

PATIENT
  Age: 35 Year
  Sex: Male

DRUGS (5)
  1. ATORVASTATIN (NGX) [Suspect]
     Route: 065
  2. BISOPROLOL (NGX) [Suspect]
     Route: 065
  3. CLOPIDOGREL [Suspect]
     Route: 065
  4. PERINDOPRIL (NGX) [Suspect]
     Route: 065
  5. CHANTIX [Suspect]
     Dosage: 1 MG, BID
     Route: 065

REACTIONS (1)
  - BLOOD PRESSURE INCREASED [None]
